FAERS Safety Report 23877220 (Version 1)
Quarter: 2024Q2

REPORT INFORMATION
  Report Type: Spontaneous
  Country: US (occurrence: US)
  Receive Date: 20240521
  Receipt Date: 20240521
  Transmission Date: 20240716
  Serious: Yes (Hospitalization)
  Sender: FDA-Public Use
  Company Number: US-ROCHE-2889300

PATIENT
  Age: 69 Year
  Sex: Male
  Weight: 97.61 kg

DRUGS (28)
  1. VALGANCICLOVIR [Suspect]
     Active Substance: VALGANCICLOVIR
     Indication: Heart transplant
     Dosage: 2 PILLS OF 450 MG TWICE DAILY (TOTAL 4 PILLS A DAY)
     Route: 048
     Dates: start: 20201204, end: 20210511
  2. VALGANCICLOVIR [Suspect]
     Active Substance: VALGANCICLOVIR
     Indication: Heart transplant
     Route: 048
     Dates: start: 20210621
  3. VALGANCICLOVIR [Suspect]
     Active Substance: VALGANCICLOVIR
     Indication: Heart transplant
     Dosage: 450 MG 2 TABLETS TWO TIMES A DAY
     Route: 048
     Dates: start: 20210709
  4. VALGANCICLOVIR [Suspect]
     Active Substance: VALGANCICLOVIR
     Indication: Heart transplant
     Dosage: ONE TABLET TWO TIMES A DAY
     Route: 048
  5. CELLCEPT [Suspect]
     Active Substance: MYCOPHENOLATE MOFETIL
     Indication: Immunosuppression
     Dosage: 500 MG, 1 TABLET MORNING AND NIGHT
     Route: 048
     Dates: start: 20210709
  6. CELLCEPT [Suspect]
     Active Substance: MYCOPHENOLATE MOFETIL
     Indication: Immunosuppression
     Dosage: 500 MG X 3 (1500 MG) TWICE A DAY
     Route: 048
     Dates: end: 20210708
  7. PAXIL [Concomitant]
     Active Substance: PAROXETINE HYDROCHLORIDE
     Route: 048
  8. ROPINIROLE [Concomitant]
     Active Substance: ROPINIROLE
     Indication: Restless legs syndrome
     Route: 048
  9. GABAPENTIN [Concomitant]
     Active Substance: GABAPENTIN
     Indication: Neuralgia
     Route: 048
  10. ASPIRIN [Concomitant]
     Active Substance: ASPIRIN
     Route: 048
  11. CALCIUM\VITAMIN D [Concomitant]
     Active Substance: CALCIUM\VITAMIN D
     Route: 048
  12. CARDURA [Concomitant]
     Active Substance: DOXAZOSIN MESYLATE
     Indication: Hypotension
     Route: 048
  13. NORVASC [Concomitant]
     Active Substance: AMLODIPINE BESYLATE
     Indication: Hypotension
     Route: 048
     Dates: start: 20210709
  14. LISINOPRIL [Concomitant]
     Active Substance: LISINOPRIL
     Indication: Hypertension
     Route: 048
  15. POTASSIUM [Concomitant]
     Active Substance: POTASSIUM
     Route: 048
  16. POTASSIUM [Concomitant]
     Active Substance: POTASSIUM
     Route: 048
  17. MAGNESIUM OXIDE [Concomitant]
     Active Substance: MAGNESIUM OXIDE
     Dosage: 400 MG X 2 (800 MG) MORNING AND NIGHT
     Route: 048
     Dates: start: 20210709
  18. MAGNESIUM OXIDE [Concomitant]
     Active Substance: MAGNESIUM OXIDE
     Route: 048
  19. NOVOLOG [Concomitant]
     Active Substance: INSULIN ASPART
     Indication: Type 2 diabetes mellitus
     Dosage: BEFORE BREAKFAST, LUNCH AND DINNER
  20. NOVOLOG [Concomitant]
     Active Substance: INSULIN ASPART
     Indication: Type 2 diabetes mellitus
     Dosage: AT BREAKFAST
  21. LEVEMIR [Concomitant]
     Active Substance: INSULIN DETEMIR
     Indication: Type 2 diabetes mellitus
     Dosage: IN MORNING
     Route: 048
  22. LEVEMIR [Concomitant]
     Active Substance: INSULIN DETEMIR
     Indication: Type 2 diabetes mellitus
     Dosage: AT NIGHT
  23. BACTRIM [Concomitant]
     Active Substance: SULFAMETHOXAZOLE\TRIMETHOPRIM
     Dosage: 3 TIMES A WEEK, M-W-F
     Route: 048
     Dates: end: 20210709
  24. FLOMAX [Concomitant]
     Active Substance: TAMSULOSIN HYDROCHLORIDE
     Dosage: AT BEDTIME
     Route: 048
  25. TACROLIMUS [Concomitant]
     Active Substance: TACROLIMUS
     Dosage: IN MORNING
     Route: 048
     Dates: start: 20210709
  26. TACROLIMUS [Concomitant]
     Active Substance: TACROLIMUS
     Dosage: 1 MG AT NIGHT
     Route: 048
     Dates: start: 20210709
  27. VITAMINS [Concomitant]
     Active Substance: VITAMINS
     Route: 048
  28. CRESTOR [Concomitant]
     Active Substance: ROSUVASTATIN CALCIUM
     Route: 048

REACTIONS (5)
  - Cytomegalovirus viraemia [Recovering/Resolving]
  - Gastritis [Recovering/Resolving]
  - Hypertension [Not Recovered/Not Resolved]
  - White blood cell count decreased [Not Recovered/Not Resolved]
  - Diarrhoea [Unknown]

NARRATIVE: CASE EVENT DATE: 20210601
